FAERS Safety Report 7410731-7 (Version None)
Quarter: 2011Q2

REPORT INFORMATION
  Report Type: 
  Country: None (occurrence: None)
  Receive Date: 20110405
  Receipt Date: 20110321
  Transmission Date: 20111010
  Serious: Yes (Disabling, Other)
  Sender: FDA-Public Use
  Company Number: 2011-0163

PATIENT
  Age: 62 Year
  Sex: Female

DRUGS (2)
  1. DYSPORT [Suspect]
     Indication: FOOT DEFORMITY
     Dosage: 1400 UNITS (1400 UNITS,SINGLE CYCLE),INTRAMUSCULAR
     Route: 030
     Dates: start: 20101122, end: 20101122
  2. DYSPORT [Suspect]
     Indication: MUSCLE SPASTICITY
     Dosage: 1400 UNITS (1400 UNITS,SINGLE CYCLE),INTRAMUSCULAR
     Route: 030
     Dates: start: 20101122, end: 20101122

REACTIONS (3)
  - FATIGUE [None]
  - MUSCULAR WEAKNESS [None]
  - ACTIVITIES OF DAILY LIVING IMPAIRED [None]
